FAERS Safety Report 8164202-3 (Version None)
Quarter: 2012Q1

REPORT INFORMATION
  Report Type: 
  Country: None (occurrence: None)
  Receive Date: 20120224
  Receipt Date: 20120216
  Transmission Date: 20120608
  Serious: Yes (Other)
  Sender: FDA-Public Use
  Company Number: US-US-EMD SERONO, INC.-7114359

PATIENT
  Sex: Female

DRUGS (1)
  1. REBIF [Suspect]
     Indication: PRODUCT USED FOR UNKNOWN INDICATION
     Route: 058
     Dates: start: 20100804

REACTIONS (6)
  - INJECTION SITE HAEMATOMA [None]
  - DEPRESSION [None]
  - IRRITABILITY [None]
  - INTENTIONAL SELF-INJURY [None]
  - INJECTION SITE MASS [None]
  - INJECTION SITE DISCOMFORT [None]
